FAERS Safety Report 5025894-0 (Version None)
Quarter: 2006Q2

REPORT INFORMATION
  Report Type: 
  Country: None (occurrence: None)
  Receive Date: 20060608
  Receipt Date: 20060608
  Transmission Date: 20061013
  Serious: Yes (Hospitalization)
  Sender: FDA-Public Use
  Company Number: None

PATIENT
  Age: 50 Year
  Sex: Male
  Weight: 86.637 kg

DRUGS (10)
  1. LISINOPRIL [Suspect]
     Indication: HYPERTENSION
     Dosage: 20 MG DAILY
     Dates: start: 20050608, end: 20060201
  2. ATENOLOL [Concomitant]
  3. FELODIPINE [Concomitant]
  4. FLUNISOLIDE [Concomitant]
  5. GEMFIBROZIL [Concomitant]
  6. METHOCARBAMOL [Concomitant]
  7. OMEPRAZOLE [Concomitant]
  8. SEROQUEL [Concomitant]
  9. PENTOXIFYLLINE [Concomitant]
  10. SIMVASTIN [Concomitant]

REACTIONS (1)
  - ANGIONEUROTIC OEDEMA [None]
